FAERS Safety Report 8334217-0 (Version None)
Quarter: 2012Q2

REPORT INFORMATION
  Report Type: 
  Country: None (occurrence: None)
  Receive Date: 20120503
  Receipt Date: 20120427
  Transmission Date: 20120825
  Serious: Yes (Death)
  Sender: FDA-Public Use
  Company Number: US-GLAXOSMITHKLINE-A0976132A

PATIENT
  Age: 52 Year
  Sex: Male

DRUGS (6)
  1. METHYLPHENIDATE [Concomitant]
  2. DEXAMETHASONE [Concomitant]
  3. OXYCONTIN [Concomitant]
  4. STOOL SOFTENER [Concomitant]
  5. FUROSEMIDE [Concomitant]
  6. VOTRIENT [Suspect]
     Indication: BONE NEOPLASM MALIGNANT
     Dosage: 400MG TWICE PER DAY
     Route: 048

REACTIONS (2)
  - DEATH [None]
  - OFF LABEL USE [None]
